FAERS Safety Report 7504373-2 (Version None)
Quarter: 2011Q2

REPORT INFORMATION
  Report Type: 
  Country: None (occurrence: None)
  Receive Date: 20110525
  Receipt Date: 20110519
  Transmission Date: 20111010
  Serious: Yes (Other)
  Sender: FDA-Public Use
  Company Number: US-PFIZER INC-2011108712

PATIENT
  Sex: Female
  Weight: 45.351 kg

DRUGS (15)
  1. CITALOPRAM [Concomitant]
     Dosage: 20 MG, 1X/DAY
  2. LATANOPROST [Suspect]
     Indication: MACULAR DEGENERATION
     Dosage: ONE DROP IN RIGHT EYE
     Route: 047
  3. AMLODIPINE [Concomitant]
     Dosage: 5 MG, 1 TAB IN MORNING AND 1/2 TAB AT NIGHT
  4. LATANOPROST [Suspect]
     Indication: INTRAOCULAR PRESSURE INCREASED
  5. VITAMIN-MINERAL COMPOUND TAB [Concomitant]
  6. XALATAN [Suspect]
     Indication: MACULAR DEGENERATION
     Dosage: ONE DROP IN RIGHT EYE
     Route: 047
  7. XALATAN [Suspect]
     Indication: INTRAOCULAR PRESSURE INCREASED
  8. LISINOPRIL [Concomitant]
     Dosage: 1 MG, 1X/DAY
  9. SODIUM BICARBONATE [Concomitant]
     Dosage: 650 MG, 3X/DAY
  10. PRAVASTATIN [Concomitant]
     Dosage: 10 MG, 1X/DAY
  11. VITAMIN B-12 [Concomitant]
     Dosage: 1000 MG, UNK
  12. VITAMIN D [Concomitant]
     Dosage: 1 DF, UNK
  13. GLUCOSAMINE [Concomitant]
     Indication: ARTHRITIS
     Dosage: 1500 MG
  14. ASCORBIC ACID [Concomitant]
     Dosage: 5 MG, UNK
  15. CALCITRIOL [Concomitant]
     Dosage: 2.5 MG, 3X/WEEK

REACTIONS (13)
  - BLINDNESS [None]
  - INTRAOCULAR PRESSURE INCREASED [None]
  - NEOPLASM [None]
  - MEMORY IMPAIRMENT [None]
  - MALAISE [None]
  - MACULAR DEGENERATION [None]
  - ARTHRITIS [None]
  - DEPRESSION [None]
  - BACK PAIN [None]
  - BODY HEIGHT DECREASED [None]
  - CATARACT [None]
  - HYPOACUSIS [None]
  - WEIGHT DECREASED [None]
